FAERS Safety Report 14967821 (Version 10)
Quarter: 2019Q3

REPORT INFORMATION
  Report Type: Spontaneous
  Country: US (occurrence: US)
  Receive Date: 20180604
  Receipt Date: 20190826
  Transmission Date: 20191004
  Serious: Yes (Other)
  Sender: FDA-Public Use
  Company Number: US-PFIZER INC-2018222867

PATIENT
  Age: 63 Year
  Sex: Female
  Weight: 136 kg

DRUGS (15)
  1. ELELYSO [Suspect]
     Active Substance: TALIGLUCERASE ALFA
     Dosage: UNK (75% OF HER DOSE)
     Dates: start: 20180621
  2. MONTELUKAST [Concomitant]
     Active Substance: MONTELUKAST SODIUM
     Indication: LUNG DISORDER
  3. BENADRYL [Concomitant]
     Active Substance: DIPHENHYDRAMINE HYDROCHLORIDE
     Indication: HYPERSENSITIVITY
     Dosage: UNK, 1X/DAY
     Route: 048
  4. CODEINE [Concomitant]
     Active Substance: CODEINE
     Dosage: UNK
     Route: 048
  5. FLUTICASONE. [Concomitant]
     Active Substance: FLUTICASONE
     Dosage: UNK
  6. ELELYSO [Suspect]
     Active Substance: TALIGLUCERASE ALFA
     Indication: GAUCHER^S DISEASE
     Dosage: UNK, EVERY 2 WEEKS
     Route: 042
     Dates: start: 20180524
  7. ELELYSO [Suspect]
     Active Substance: TALIGLUCERASE ALFA
     Dosage: UNK (50% OF HER DOSE)
     Dates: start: 20180607
  8. ELELYSO [Suspect]
     Active Substance: TALIGLUCERASE ALFA
     Dosage: 60 IU/KG, UNK
  9. LOSARTAN. [Concomitant]
     Active Substance: LOSARTAN
     Indication: CARDIAC DISORDER
     Dosage: 100 MG, 1X/DAY
     Route: 048
  10. FIORICET [Concomitant]
     Active Substance: ACETAMINOPHEN\BUTALBITAL\CAFFEINE
     Indication: PAIN
     Dosage: 2 DF, EVERY 6 HOURS
     Route: 048
  11. OXYCODONE [Concomitant]
     Active Substance: OXYCODONE
     Indication: PAIN
     Dosage: 10 MG, AS NEEDED
     Route: 048
  12. PROPRANOLOL [Concomitant]
     Active Substance: PROPRANOLOL HYDROCHLORIDE
     Indication: CARDIAC DISORDER
     Dosage: 5 MG, 1X/DAY
     Route: 048
  13. SPIRONOLACTONE. [Concomitant]
     Active Substance: SPIRONOLACTONE
     Indication: CARDIAC DISORDER
     Dosage: 50 MG, 1X/DAY
     Route: 048
  14. MONTELUKAST [Concomitant]
     Active Substance: MONTELUKAST SODIUM
     Indication: ASTHMA
     Dosage: 10 MG, 1X/DAY
     Route: 048
  15. ELELYSO [Suspect]
     Active Substance: TALIGLUCERASE ALFA
     Dosage: UNK (50% OF THE DOSE/HAS HAD 4 TX)
     Dates: start: 20180524

REACTIONS (27)
  - Cystitis [Recovering/Resolving]
  - Influenza like illness [Unknown]
  - Malaise [Recovering/Resolving]
  - Pulmonary pain [Unknown]
  - Bone pain [Unknown]
  - Dry skin [Unknown]
  - Hypertension [Unknown]
  - Lung infection [Recovering/Resolving]
  - Blood potassium decreased [Unknown]
  - Viral infection [Recovering/Resolving]
  - Incorrect dose administered [Unknown]
  - Pain [Recovering/Resolving]
  - Fatigue [Unknown]
  - Skin fissures [Unknown]
  - Arthralgia [Recovered/Resolved]
  - Pruritus [Unknown]
  - Asthenia [Recovering/Resolving]
  - Product preparation issue [Unknown]
  - Asthenopia [Unknown]
  - Weight increased [Unknown]
  - Feeling abnormal [Unknown]
  - Erythema [Unknown]
  - Chest pain [Unknown]
  - Asthma [Unknown]
  - Hypersomnia [Unknown]
  - Rash [Recovered/Resolved]
  - Skin exfoliation [Unknown]

NARRATIVE: CASE EVENT DATE: 20180524
